FAERS Safety Report 10177872 (Version 5)
Quarter: 2014Q2

REPORT INFORMATION
  Report Type: Report from Study
  Country: CN (occurrence: CN)
  Receive Date: 20140516
  Receipt Date: 20140624
  Transmission Date: 20141212
  Serious: Yes (Hospitalization, Other)
  Sender: FDA-Public Use
  Company Number: CN-ABBVIE-14P-035-1214687-00

PATIENT
  Age: 51 Year
  Sex: Female
  Weight: 43 kg

DRUGS (9)
  1. HUMIRA [Suspect]
     Indication: CROHN^S DISEASE
     Route: 058
     Dates: start: 20140214, end: 20140214
  2. HUMIRA [Suspect]
     Route: 058
     Dates: start: 20140227, end: 20140227
  3. THALIDOMIDE [Concomitant]
     Indication: CROHN^S DISEASE
     Dosage: QN
     Route: 048
     Dates: start: 20131029, end: 20140331
  4. METHOTREXATE [Concomitant]
     Indication: CROHN^S DISEASE
     Route: 058
     Dates: start: 20131029, end: 20140320
  5. POLYSACCHARIDE-IRON COMPLEX [Concomitant]
     Indication: ANAEMIA
     Route: 048
     Dates: start: 20131203, end: 20140320
  6. MEDROL [Concomitant]
     Indication: CROHN^S DISEASE
     Route: 048
     Dates: start: 20140114
  7. NORFLOXACIN [Concomitant]
     Indication: PRODUCT USED FOR UNKNOWN INDICATION
     Dates: start: 20140302, end: 20140305
  8. ANTIDIARRHEAL [Concomitant]
     Indication: NASOPHARYNGITIS
     Route: 048
     Dates: start: 20140302, end: 20140305
  9. OFLOXACIN [Concomitant]
     Indication: ABDOMINAL PAIN
     Route: 041
     Dates: start: 20140307, end: 20140307

REACTIONS (5)
  - Intestinal obstruction [Unknown]
  - Crohn^s disease [Unknown]
  - Lung infection [Not Recovered/Not Resolved]
  - Tuberculosis gastrointestinal [Not Recovered/Not Resolved]
  - Disseminated tuberculosis [Not Recovered/Not Resolved]
